FAERS Safety Report 9698595 (Version 1)
Quarter: 2013Q4

REPORT INFORMATION
  Report Type: Report from Study
  Country: GB (occurrence: GB)
  Receive Date: 20131120
  Receipt Date: 20131120
  Transmission Date: 20140711
  Serious: Yes (Hospitalization)
  Sender: FDA-Public Use
  Company Number: GB-GLAXOSMITHKLINE-B0945438A

PATIENT
  Sex: 0

DRUGS (1)
  1. PAZOPANIB [Suspect]
     Indication: RENAL CELL CARCINOMA

REACTIONS (5)
  - Oral pain [Unknown]
  - Nausea [Unknown]
  - Diarrhoea [Unknown]
  - Impaired healing [Recovered/Resolved]
  - Proteinuria [Unknown]
